FAERS Safety Report 4702590-8 (Version None)
Quarter: 2005Q2

REPORT INFORMATION
  Report Type: 
  Country: None (occurrence: None)
  Receive Date: 20050629
  Receipt Date: 20050607
  Transmission Date: 20051028
  Serious: Yes (Death, Hospitalization)
  Sender: FDA-Public Use
  Company Number: PHBS2005TH08068

PATIENT
  Age: 40 Year
  Sex: Female

DRUGS (5)
  1. CERTICAN [Suspect]
     Indication: RENAL TRANSPLANT
     Dosage: 2.5 MG/D
     Route: 048
     Dates: start: 20050519
  2. CERTICAN [Suspect]
     Dosage: 0.75 MG, BID
     Route: 048
     Dates: end: 20050604
  3. CELLCEPT [Concomitant]
     Indication: RENAL TRANSPLANT
     Dosage: 2 G/D
     Dates: start: 20050501, end: 20050608
  4. PREDNISOLONE [Concomitant]
     Indication: RENAL TRANSPLANT
     Dates: start: 20050501, end: 20050608
  5. NEORAL [Suspect]
     Indication: RENAL TRANSPLANT
     Dates: start: 20050501, end: 20050518

REACTIONS (8)
  - BLOOD CREATININE INCREASED [None]
  - BRAIN OEDEMA [None]
  - CEREBRAL HAEMORRHAGE [None]
  - CONVULSION [None]
  - HERPES VIRUS INFECTION [None]
  - NEPHRECTOMY [None]
  - RENAL HAEMATOMA [None]
  - THROMBOCYTOPENIA [None]
